FAERS Safety Report 15195760 (Version 1)
Quarter: 2018Q3

REPORT INFORMATION
  Report Type: Spontaneous
  Country: JP (occurrence: JP)
  Receive Date: 20180725
  Receipt Date: 20180725
  Transmission Date: 20181010
  Serious: Yes (Death)
  Sender: FDA-Public Use
  Company Number: JP-PFIZER INC-2018297643

PATIENT
  Age: 76 Year
  Sex: Male

DRUGS (1)
  1. ESTRACYT [Suspect]
     Active Substance: ESTRAMUSTINE PHOSPHATE SODIUM
     Indication: PROSTATE CANCER
     Dosage: 626.8 MG, 2X/DAY
     Route: 048
     Dates: start: 20170303

REACTIONS (2)
  - Gastric cancer [Fatal]
  - Second primary malignancy [Fatal]

NARRATIVE: CASE EVENT DATE: 201704
